FAERS Safety Report 6999010-X (Version None)
Quarter: 2010Q3

REPORT INFORMATION
  Report Type: 
  Country: None (occurrence: None)
  Receive Date: 20100920
  Receipt Date: 20100914
  Transmission Date: 20110219
  Serious: Yes (Other)
  Sender: FDA-Public Use
  Company Number: US-ASTRAZENECA-2008UW28429

PATIENT
  Age: 41 Year
  Sex: Female
  Weight: 59 kg

DRUGS (10)
  1. SEROQUEL [Suspect]
     Indication: DEPRESSION
     Route: 048
     Dates: start: 19980101, end: 20080101
  2. SEROQUEL [Suspect]
     Indication: INSOMNIA
     Route: 048
     Dates: start: 19980101, end: 20080101
  3. SEROQUEL [Suspect]
     Indication: DIABETES MELLITUS
     Route: 048
     Dates: start: 19980101, end: 20080101
  4. SEROQUEL [Suspect]
     Route: 048
     Dates: start: 20000101, end: 20070101
  5. SEROQUEL [Suspect]
     Route: 048
     Dates: start: 20000101, end: 20070101
  6. SEROQUEL [Suspect]
     Route: 048
     Dates: start: 20000101, end: 20070101
  7. SEROQUEL [Suspect]
     Dosage: 100-800 MG
     Route: 048
     Dates: start: 20000101, end: 20061001
  8. SEROQUEL [Suspect]
     Dosage: 100-800 MG
     Route: 048
     Dates: start: 20000101, end: 20061001
  9. SEROQUEL [Suspect]
     Dosage: 100-800 MG
     Route: 048
     Dates: start: 20000101, end: 20061001
  10. ZYPREXA [Concomitant]
     Indication: DEPRESSION
     Dosage: 7.5-10 MG
     Dates: start: 20010720, end: 20020221

REACTIONS (9)
  - ABDOMINAL PAIN [None]
  - BACK PAIN [None]
  - FATIGUE [None]
  - HYPERGLYCAEMIA [None]
  - MYOSITIS [None]
  - PANCREATITIS [None]
  - PANCREATITIS ACUTE [None]
  - TYPE 2 DIABETES MELLITUS [None]
  - UTERINE DISORDER [None]
